FAERS Safety Report 4673239-8 (Version None)
Quarter: 2005Q2

REPORT INFORMATION
  Report Type: 
  Country: None (occurrence: None)
  Receive Date: 20050525
  Receipt Date: 20050519
  Transmission Date: 20051028
  Serious: Yes (Death, Hospitalization)
  Sender: FDA-Public Use
  Company Number: 200511672FR

PATIENT
  Age: 90 Year
  Sex: Male

DRUGS (5)
  1. TOPALGIC [Suspect]
     Route: 048
     Dates: end: 20050416
  2. LASILIX [Suspect]
     Route: 048
     Dates: end: 20050416
  3. ROVAMYCINE [Suspect]
     Route: 048
     Dates: end: 20050409
  4. AUGMENTIN '125' [Suspect]
     Route: 048
     Dates: start: 20050331, end: 20050408
  5. PANTOPRAZOLE SODIUM [Suspect]
     Route: 048
     Dates: end: 20050416

REACTIONS (4)
  - CONDITION AGGRAVATED [None]
  - PURPURA NON-THROMBOCYTOPENIC [None]
  - RESPIRATORY DISORDER [None]
  - RESPIRATORY FAILURE [None]
